FAERS Safety Report 16671950 (Version 1)
Quarter: 2019Q3

REPORT INFORMATION
  Report Type: Spontaneous
  Country: CH (occurrence: CH)
  Receive Date: 20190806
  Receipt Date: 20190806
  Transmission Date: 20191004
  Serious: Yes (Life-Threatening, Hospitalization, Other)
  Sender: FDA-Public Use
  Company Number: CH-TEVA-2019-CH-1087920

PATIENT
  Age: 62 Year
  Sex: Female
  Weight: 121.4 kg

DRUGS (18)
  1. HUMALOG MIX [Concomitant]
     Active Substance: INSULIN LISPRO
     Dosage: AS NECESSARY
     Route: 058
  2. RANITIDIN-MEPHA [Concomitant]
     Route: 048
  3. TRANSIPEG [Concomitant]
     Route: 048
  4. IMPORTAL [Concomitant]
     Active Substance: LACTITOL
     Route: 048
  5. METO ZEROK [Concomitant]
     Active Substance: METOPROLOL SUCCINATE
     Route: 048
  6. FENTANYL SANDOZ MAT [Concomitant]
     Active Substance: FENTANYL
     Route: 062
     Dates: end: 201906
  7. ASPIRIN CARDIO [Concomitant]
     Active Substance: ASPIRIN
     Route: 048
  8. TORASEMID SANDOZ ECO [Concomitant]
     Active Substance: TORSEMIDE
     Route: 048
     Dates: start: 201906
  9. LISINOPRIL MEPHA [Suspect]
     Active Substance: LISINOPRIL
     Indication: CARDIAC FAILURE
     Dosage: 20 MILLIGRAM DAILY;
     Route: 048
     Dates: end: 20190619
  10. ALDACTONE [Suspect]
     Active Substance: SPIRONOLACTONE
     Indication: CARDIAC FAILURE
     Dosage: 100 MILLIGRAM DAILY;
     Route: 048
     Dates: end: 20190619
  11. AMLODIPINE [Concomitant]
     Active Substance: AMLODIPINE BESYLATE
     Route: 048
  12. NOVORAPID [Concomitant]
     Active Substance: INSULIN ASPART
     Dosage: AS NECESSARY
     Route: 058
  13. TORASEMID SANDOZ ECO [Concomitant]
     Active Substance: TORSEMIDE
     Route: 048
     Dates: end: 201906
  14. CARDURA CR [Concomitant]
     Active Substance: DOXAZOSIN MESYLATE
     Route: 048
  15. VITAMIN D3 STREULI [Concomitant]
     Active Substance: CHOLECALCIFEROL
     Route: 048
  16. OXYNORM [Concomitant]
     Active Substance: OXYCODONE HYDROCHLORIDE
     Route: 048
  17. DAFALGAN [Concomitant]
     Active Substance: ACETAMINOPHEN
     Route: 048
  18. VALVERDE VERSTOPFUNG [Concomitant]
     Active Substance: HERBALS
     Route: 048

REACTIONS (2)
  - Hyperkalaemia [Recovered/Resolved]
  - Bradycardia [Recovered/Resolved]

NARRATIVE: CASE EVENT DATE: 20190619
